FAERS Safety Report 9783350 (Version 3)
Quarter: 2014Q3

REPORT INFORMATION
  Report Type: Other
  Country: US (occurrence: US)
  Receive Date: 20131226
  Receipt Date: 20140718
  Transmission Date: 20150326
  Serious: Yes (Life-Threatening, Other)
  Sender: FDA-Public Use
  Company Number: US-SHIRE-ALL1-2013-08962

PATIENT
  Age: 61 Year
  Sex: Female
  Weight: 58.5 kg

DRUGS (10)
  1. VPRIV [Suspect]
     Active Substance: VELAGLUCERASE ALFA
     Dosage: 2800 IU, OTHER (MONTHLY)
     Route: 041
     Dates: start: 20131217
  2. FERREX [Concomitant]
     Indication: BLOOD IRON DECREASED
     Dosage: 1 DF, 2X/DAY:BID
     Route: 065
  3. VPRIV [Suspect]
     Active Substance: VELAGLUCERASE ALFA
     Indication: GAUCHER^S DISEASE
     Dosage: 3600 IU, OTHER (Q 4 WEEKS)
     Route: 041
     Dates: start: 20130521, end: 20130521
  4. VPRIV [Suspect]
     Active Substance: VELAGLUCERASE ALFA
     Dosage: 2800 IU, 1X/2WKS
     Route: 041
     Dates: start: 20101229
  5. VITAMIN D                          /00107901/ [Concomitant]
     Active Substance: ERGOCALCIFEROL
     Indication: PRODUCT USED FOR UNKNOWN INDICATION
     Dosage: UNK, UNKNOWN
     Route: 065
  6. VPRIV [Suspect]
     Active Substance: VELAGLUCERASE ALFA
     Dosage: 3600 IU, OTHER (MONTHLY)
     Route: 041
     Dates: start: 20131028, end: 20131125
  7. EPLERENONE. [Concomitant]
     Active Substance: EPLERENONE
     Dosage: 25 MG, 1X/DAY:QD(EVENING)
     Route: 065
  8. VITAMIN C [Concomitant]
     Active Substance: ASCORBIC ACID
     Indication: PRODUCT USED FOR UNKNOWN INDICATION
     Dosage: UNK, UNKNOWN
     Route: 065
  9. XANAX [Concomitant]
     Active Substance: ALPRAZOLAM
     Indication: PRODUCT USED FOR UNKNOWN INDICATION
     Dosage: 1 MG, 1X/DAY:QD(BEDTIME)
     Route: 065
  10. EPLERENONE. [Concomitant]
     Active Substance: EPLERENONE
     Indication: PRODUCT USED FOR UNKNOWN INDICATION
     Dosage: 50 MG, 1X/DAY:QD(TWO 25 MG IN MORNING)
     Route: 065

REACTIONS (10)
  - Diabetes mellitus [Not Recovered/Not Resolved]
  - Wound haemorrhage [Unknown]
  - Product quality issue [Recovered/Resolved]
  - Weight decreased [Not Recovered/Not Resolved]
  - Oedema peripheral [Unknown]
  - Impaired healing [Unknown]
  - Blister [Unknown]
  - Pancreatic carcinoma [Not Recovered/Not Resolved]
  - Metastases to liver [Unknown]
  - Skin irritation [Unknown]

NARRATIVE: CASE EVENT DATE: 20130521
